FAERS Safety Report 24995926 (Version 1)
Quarter: 2025Q1

REPORT INFORMATION
  Report Type: Spontaneous
  Country: US (occurrence: US)
  Receive Date: 20250221
  Receipt Date: 20250221
  Transmission Date: 20250409
  Serious: No
  Sender: CATALYST PHARMA
  Company Number: US-CATALYST PHARMACEUTICALS-US-CATA-24-01243

PATIENT
  Sex: Male
  Weight: 37.642 kg

DRUGS (4)
  1. AGAMREE [Suspect]
     Active Substance: VAMOROLONE
     Indication: Duchenne muscular dystrophy
     Route: 048
     Dates: start: 20240406, end: 20240916
  2. AGAMREE [Suspect]
     Active Substance: VAMOROLONE
     Dosage: 4 ML DAILY
     Route: 048
     Dates: start: 20240916
  3. QBRELIS [Concomitant]
     Active Substance: LISINOPRIL
     Indication: Cardiovascular event prophylaxis
     Dosage: 5 ML DAILY
     Route: 048
  4. VILTEPSO [Concomitant]
     Active Substance: VILTOLARSEN
     Indication: Duchenne muscular dystrophy
     Dosage: 5 ML WEEKLY
     Route: 042

REACTIONS (1)
  - Weight increased [Not Recovered/Not Resolved]

NARRATIVE: CASE EVENT DATE: 20240101
